FAERS Safety Report 20948851 (Version 1)
Quarter: 2022Q2

REPORT INFORMATION
  Report Type: Spontaneous
  Country: US (occurrence: US)
  Receive Date: 20220612
  Receipt Date: 20220612
  Transmission Date: 20220721
  Serious: Yes (Death, Life-Threatening, Hospitalization, Other)
  Sender: FDA-Public Use
  Company Number: US-CELGENE-USA-20211105999

PATIENT
  Age: 49 Year
  Sex: Male

DRUGS (9)
  1. ABRAXANE [Suspect]
     Active Substance: PACLITAXEL
     Indication: Product used for unknown indication
     Dosage: FREQUENCY TEXT: ON DAYS 1, 8, AND 15 OF 28 DAY CYCLE
     Route: 042
     Dates: start: 20211103, end: 20211115
  2. GEMCITABINE [Suspect]
     Active Substance: GEMCITABINE
     Indication: Product used for unknown indication
     Dosage: ON DAYS 1, 8, AND 15 OF EACH 28-DAY CYCLE
     Route: 042
     Dates: start: 20211103, end: 20211115
  3. BATIRAXCEPT [Suspect]
     Active Substance: BATIRAXCEPT
     Indication: Product used for unknown indication
     Dosage: DAY 1 AND 15 OF EACH 28-DAY CYCLE
     Route: 042
     Dates: start: 20211103, end: 20211115
  4. ALBUTEROL [Concomitant]
     Active Substance: ALBUTEROL
     Indication: Wheezing
     Dosage: FREQUENCY TEXT: AS NEEDED?90 MICROGRAM
     Route: 055
     Dates: start: 20210902
  5. AMLODIPINE [Concomitant]
     Active Substance: AMLODIPINE BESYLATE
     Indication: Blood pressure measurement
     Dosage: 5 MILLIGRAM
     Route: 048
     Dates: start: 20210513
  6. METOPROLOL [Concomitant]
     Active Substance: METOPROLOL
     Indication: Blood pressure measurement
     Dosage: 25 MILLIGRAM
     Route: 048
     Dates: start: 20211002
  7. OMEPRAZOLE [Concomitant]
     Active Substance: OMEPRAZOLE
     Indication: Gastrooesophageal reflux disease
     Dosage: 40 MILLIGRAM
     Route: 048
     Dates: start: 20211014
  8. ONDANSETRON [Concomitant]
     Active Substance: ONDANSETRON
     Indication: Nausea
     Dosage: FREQUENCY TEXT: AS NEEDED?8 MILLIGRAM
     Route: 048
     Dates: start: 20211012
  9. OXYCODONE [Concomitant]
     Active Substance: OXYCODONE
     Indication: Pain
     Dosage: FREQUENCY TEXT: AS NEEDED?10 MILLIGRAM
     Route: 048
     Dates: start: 20211002

REACTIONS (2)
  - Pancreatic carcinoma [Fatal]
  - Sepsis [Recovered/Resolved]

NARRATIVE: CASE EVENT DATE: 20211101
